FAERS Safety Report 5235148-5 (Version None)
Quarter: 2007Q1

REPORT INFORMATION
  Report Type: 
  Country: None (occurrence: None)
  Receive Date: 20070207
  Receipt Date: 20070123
  Transmission Date: 20070707
  Serious: Yes (Hospitalization)
  Sender: FDA-Public Use
  Company Number: 235432

PATIENT
  Age: 58 Year
  Sex: Male

DRUGS (16)
  1. XOLAIR [Suspect]
     Indication: ASTHMA
     Dosage: 150 MG, 1/MONTH, SUBCUTANEOUS
     Route: 058
     Dates: start: 20061019
  2. DEFLAZACORT [Concomitant]
  3. SINGULAIR [Concomitant]
  4. SERETIDE DISKUS (FLUTICASONE PROPIONATE, SALMETEROL XINAFOATE) [Concomitant]
  5. FORADIL [Concomitant]
  6. ATROVENT [Concomitant]
  7. SALBUTAMOL (ALBUTEROL/ALBUTEROL SULFATE) [Concomitant]
  8. FOSAMAX [Concomitant]
  9. CALCIUM CITRATE [Concomitant]
  10. TRAMADOL HCL [Concomitant]
  11. CALCITRIOL [Concomitant]
  12. MIACALCIC (SALCATONIN) [Concomitant]
  13. COUMADIN [Concomitant]
  14. AMITRIPTYLINE (AMITRIPTYLIINE HYDROCHLORIDE) [Concomitant]
  15. OMEPRAZOLE [Concomitant]
  16. DOXOFYLLINE (XANTHINE DERIVATIVE NOS) [Concomitant]

REACTIONS (3)
  - BACTERAEMIA [None]
  - PNEUMONIA [None]
  - PRURITUS [None]
